FAERS Safety Report 8483281-7 (Version None)
Quarter: 2012Q3

REPORT INFORMATION
  Report Type: 
  Country: None (occurrence: None)
  Receive Date: 20120702
  Receipt Date: 20120622
  Transmission Date: 20120928
  Serious: Yes (Other)
  Sender: FDA-Public Use
  Company Number: US-ELI_LILLY_AND_COMPANY-US201204007503

PATIENT
  Sex: Female
  Weight: 99.8 kg

DRUGS (6)
  1. PREDNISONE TAB [Concomitant]
     Indication: AUTOIMMUNE DISORDER
     Dosage: UNK
     Dates: start: 20030101
  2. VICODIN [Concomitant]
     Indication: PAIN
  3. CORTICOSTEROIDS [Concomitant]
  4. DURAGESIC-100 [Concomitant]
     Indication: PAIN
  5. FORTEO [Suspect]
     Indication: OSTEOPOROSIS
     Dosage: 20 UG, QD
  6. FORTEO [Suspect]
     Dosage: 20 UG, QD

REACTIONS (10)
  - PELVIC FRACTURE [None]
  - THYROID DISORDER [None]
  - BONE DENSITY DECREASED [None]
  - AMENORRHOEA [None]
  - ILL-DEFINED DISORDER [None]
  - MENOPAUSE [None]
  - BLOOD PARATHYROID HORMONE DECREASED [None]
  - INTENTIONAL DRUG MISUSE [None]
  - SPINAL COMPRESSION FRACTURE [None]
  - CRANIOCEREBRAL INJURY [None]
